FAERS Safety Report 23998102 (Version 1)
Quarter: 2024Q2

REPORT INFORMATION
  Report Type: Spontaneous
  Country: US (occurrence: None)
  Receive Date: 20240620
  Receipt Date: 20240620
  Transmission Date: 20240716
  Serious: Yes (Other)
  Sender: FDA-Public Use
  Company Number: None

PATIENT
  Age: 64 Year
  Sex: 0
  Weight: 109 kg

DRUGS (3)
  1. DIETARY SUPPLEMENT [Suspect]
     Active Substance: DIETARY SUPPLEMENT
     Indication: Arthralgia
     Dosage: 100 MCG    FREQ  3  ORAL
     Route: 048
     Dates: start: 20240214, end: 20240214
  2. DEXAMETHASONE [Suspect]
     Active Substance: DEXAMETHASONE
  3. PREDNISONE [Suspect]
     Active Substance: PREDNISONE

REACTIONS (3)
  - Secondary adrenocortical insufficiency [None]
  - Cortisol decreased [None]
  - Hypertension [None]

NARRATIVE: CASE EVENT DATE: 20240214
